FAERS Safety Report 5408548-8 (Version None)
Quarter: 2007Q3

REPORT INFORMATION
  Report Type: 
  Country: None (occurrence: None)
  Receive Date: 20070808
  Receipt Date: 20070802
  Transmission Date: 20080115
  Serious: Yes (Other)
  Sender: FDA-Public Use
  Company Number: JP-AVENTIS-200410888JP

PATIENT
  Age: 1 Year
  Sex: Male

DRUGS (6)
  1. CEFOTAXIME SODIUM [Suspect]
     Indication: MENINGITIS BACTERIAL
  2. PIPC [Concomitant]
     Indication: MENINGITIS BACTERIAL
  3. CEFPIROME SULFATE [Concomitant]
     Indication: MENINGITIS BACTERIAL
  4. PANIPENEM [Concomitant]
     Indication: MENINGITIS BACTERIAL
  5. CHLORAMPHENICOL [Concomitant]
     Indication: MENINGITIS BACTERIAL
  6. CEFTRIAXONE SODIUM [Concomitant]
     Indication: MENINGITIS BACTERIAL

REACTIONS (1)
  - MENINGITIS ASEPTIC [None]
